FAERS Safety Report 4301464-4 (Version None)
Quarter: 2004Q1

REPORT INFORMATION
  Report Type: 
  Country: None (occurrence: None)
  Receive Date: 20040220
  Receipt Date: 20040220
  Transmission Date: 20041129
  Serious: Yes (Hospitalization)
  Sender: FDA-Public Use
  Company Number: None

PATIENT
  Age: 38 Year
  Sex: Male
  Weight: 76.6579 kg

DRUGS (2)
  1. CISPLATIN [Suspect]
     Indication: GASTRIC CANCER
     Dosage: SEE IMAGE
     Dates: start: 20040202, end: 20040206
  2. TONOL 15 MG [Suspect]
     Dosage: SEE IMAGE
     Dates: start: 20040202, end: 20040206

REACTIONS (2)
  - BLOOD CULTURE POSITIVE [None]
  - SEPSIS [None]
